FAERS Safety Report 11087687 (Version 1)
Quarter: 2015Q2

REPORT INFORMATION
  Report Type: Spontaneous
  Country: BR (occurrence: BR)
  Receive Date: 20150504
  Receipt Date: 20150504
  Transmission Date: 20150821
  Serious: Yes (Death, Hospitalization)
  Sender: FDA-Public Use
  Company Number: BR-B.I. PHARMACEUTICALS,INC./RIDGEFIELD-2015-BI-23632BR

PATIENT
  Age: 71 Year
  Sex: Male

DRUGS (2)
  1. ONBRIZE [Suspect]
     Active Substance: INDACATEROL MALEATE
     Indication: EMPHYSEMA
     Route: 065
     Dates: start: 20120227
  2. SPIRIVA RESPIMAT [Suspect]
     Active Substance: TIOTROPIUM BROMIDE
     Indication: EMPHYSEMA
     Route: 065
     Dates: start: 20120227

REACTIONS (2)
  - Leukaemia [Fatal]
  - Emphysema [Fatal]

NARRATIVE: CASE EVENT DATE: 201202
